FAERS Safety Report 7110092-7 (Version None)
Quarter: 2010Q4

REPORT INFORMATION
  Report Type: 
  Country: None (occurrence: None)
  Receive Date: 20101118
  Receipt Date: 20101115
  Transmission Date: 20110411
  Serious: Yes (Death, Hospitalization)
  Sender: FDA-Public Use
  Company Number: DE-SANOFI-AVENTIS-2010SA068440

PATIENT
  Age: 74 Year
  Sex: Male

DRUGS (12)
  1. DOCETAXEL [Suspect]
     Route: 041
     Dates: start: 20101007, end: 20101007
  2. DOCETAXEL [Suspect]
     Route: 041
     Dates: start: 20101104, end: 20101104
  3. OXALIPLATIN [Suspect]
     Route: 041
     Dates: start: 20101007, end: 20101007
  4. OXALIPLATIN [Suspect]
     Route: 041
     Dates: start: 20101104, end: 20101104
  5. 5-FU [Suspect]
     Route: 041
     Dates: start: 20101007, end: 20101007
  6. 5-FU [Suspect]
     Route: 041
     Dates: start: 20101104, end: 20101104
  7. FOLINIC ACID [Suspect]
     Route: 041
     Dates: start: 20101007, end: 20101007
  8. FOLINIC ACID [Suspect]
     Route: 041
     Dates: start: 20101104, end: 20101104
  9. BISOPROLOL FUMARATE [Concomitant]
     Indication: HYPERTENSION
     Route: 048
     Dates: end: 20101101
  10. PROVAS COMP [Concomitant]
     Indication: HYPERTENSION
     Route: 048
     Dates: end: 20101101
  11. AMLODIPINE [Concomitant]
     Indication: HYPERTENSION
     Route: 048
     Dates: end: 20101101
  12. METFORMIN [Concomitant]
     Route: 048
     Dates: end: 20101101

REACTIONS (6)
  - GENERAL PHYSICAL HEALTH DETERIORATION [None]
  - LUNG INFILTRATION [None]
  - MULTI-ORGAN FAILURE [None]
  - NAUSEA [None]
  - NEUTROPENIA [None]
  - SEPSIS [None]
